FAERS Safety Report 4470805-X (Version None)
Quarter: 2004Q4

REPORT INFORMATION
  Report Type: 
  Country: None (occurrence: None)
  Receive Date: 20041007
  Receipt Date: 20041007
  Transmission Date: 20050328
  Serious: Yes (Other)
  Sender: FDA-Public Use
  Company Number: None

PATIENT
  Sex: Male
  Weight: 75.7507 kg

DRUGS (20)
  1. ZOLEDRONIC ACID, 4 MG, NOVARTIS PHARMACEUTICALS [Suspect]
     Indication: PROSTATE CANCER METASTATIC
     Dosage: 4 MG, Q4WEEKS, IV
     Route: 042
     Dates: start: 20040601, end: 20040902
  2. CASODEX/ZOLADEX [Concomitant]
  3. EMCYT/TAXOTERE [Concomitant]
  4. ZOMETA [Concomitant]
  5. CALCIUM + VITAMIN D [Concomitant]
  6. PREDNISONE [Concomitant]
  7. HYDROCODONE [Concomitant]
  8. VITAMIN C [Concomitant]
  9. DETROL [Concomitant]
  10. LORATADINE [Concomitant]
  11. LASIX [Concomitant]
  12. SIMVASTATIN [Concomitant]
  13. FOLIC ACID [Concomitant]
  14. FERROUS SULFATE TAB [Concomitant]
  15. METOCLPRAMIDE HCL [Concomitant]
  16. TYLENOL W/ CODEINE [Concomitant]
  17. MORPHINE SULFATE [Concomitant]
  18. INDOCIN [Concomitant]
  19. STOOL SOFTENER [Concomitant]
  20. ZAROXOLYN [Concomitant]

REACTIONS (6)
  - CONDITION AGGRAVATED [None]
  - HYPOAESTHESIA [None]
  - MALIGNANT NEOPLASM PROGRESSION [None]
  - METASTASES TO BONE [None]
  - PAIN IN JAW [None]
  - PROSTATIC SPECIFIC ANTIGEN INCREASED [None]
